FAERS Safety Report 5715081-2 (Version None)
Quarter: 2008Q2

REPORT INFORMATION
  Report Type: 
  Country: None (occurrence: None)
  Receive Date: 20080423
  Receipt Date: 20080416
  Transmission Date: 20081010
  Serious: Yes (Other)
  Sender: FDA-Public Use
  Company Number: FR-BOEHRINGER INGELHEIM GMBH, GERMANY-2008-FF-00310FF

PATIENT
  Sex: Female

DRUGS (6)
  1. SPIRIVA [Suspect]
     Route: 055
  2. ALTEIS [Concomitant]
  3. ALDACTAZIDE [Concomitant]
  4. CHONDROSULF [Concomitant]
  5. CALCIUM+VIT D3 [Concomitant]
  6. FENOFIBRATE [Concomitant]

REACTIONS (1)
  - SCLERODERMA [None]
